FAERS Safety Report 5934671-5 (Version None)
Quarter: 2008Q4

REPORT INFORMATION
  Report Type: 
  Country: None (occurrence: None)
  Receive Date: 20081029
  Receipt Date: 20081021
  Transmission Date: 20090506
  Serious: Yes (Other)
  Sender: FDA-Public Use
  Company Number: US-PFIZER INC-2008088848

PATIENT
  Sex: Female

DRUGS (2)
  1. NORVASC [Suspect]
  2. ZOCOR [Suspect]

REACTIONS (4)
  - DIZZINESS [None]
  - GAIT DISTURBANCE [None]
  - MIDDLE INSOMNIA [None]
  - VERTIGO [None]
